FAERS Safety Report 6538048-3 (Version None)
Quarter: 2010Q1

REPORT INFORMATION
  Report Type: 
  Country: None (occurrence: None)
  Receive Date: 20100112
  Receipt Date: 20100112
  Transmission Date: 20100710
  Serious: No
  Sender: FDA-Public Use
  Company Number: None

PATIENT
  Sex: Male
  Weight: 63 kg

DRUGS (2)
  1. PROPECIA [Suspect]
     Indication: ALOPECIA
     Dosage: 1MG ONCE A DAY PO
     Route: 048
     Dates: start: 20091031, end: 20091103
  2. SUCRALFATE [Concomitant]

REACTIONS (12)
  - DEPRESSION [None]
  - DISTURBANCE IN ATTENTION [None]
  - EJACULATION DISORDER [None]
  - ERECTILE DYSFUNCTION [None]
  - HANGOVER [None]
  - INSOMNIA [None]
  - LOSS OF LIBIDO [None]
  - PENIS DISORDER [None]
  - QUALITY OF LIFE DECREASED [None]
  - SEMEN VISCOSITY DECREASED [None]
  - TESTICULAR DISORDER [None]
  - TESTICULAR PAIN [None]
